FAERS Safety Report 14384563 (Version 3)
Quarter: 2018Q1

REPORT INFORMATION
  Report Type: Report from Study
  Country: None (occurrence: CA)
  Receive Date: 20180115
  Receipt Date: 20180209
  Transmission Date: 20180509
  Serious: Yes (Death, Life-Threatening, Hospitalization, Other)
  Sender: FDA-Public Use
  Company Number: CA-ABBVIE-18K-028-2219184-00

PATIENT
  Age: 66 Year
  Sex: Female
  Weight: 43 kg

DRUGS (5)
  1. DUODOPA [Suspect]
     Active Substance: CARBIDOPA\LEVODOPA
     Dosage: 2.1 ML/HOUR?EXTRA BOLUS AMOUNT: 0.3 ML
     Route: 050
     Dates: start: 20180107
  2. LORAZEPAM. [Concomitant]
     Active Substance: LORAZEPAM
     Indication: ANXIETY
     Dosage: AS NEEDED
     Route: 048
     Dates: start: 20180107
  3. CLONAZEPAM. [Concomitant]
     Active Substance: CLONAZEPAM
     Indication: ANXIETY
     Dosage: 0.5/1.5 MG, AT BEDTIME
     Route: 048
     Dates: start: 20180107
  4. DUODOPA [Suspect]
     Active Substance: CARBIDOPA\LEVODOPA
     Indication: DYSKINESIA
     Dosage: MORNING DOSE: 6.7ML?CONTINUOUS DOSE RATE: 2.3 ML/H?EXTRA DOSE: 0.8 ML
     Route: 050
     Dates: start: 20171204
  5. CARBIDOPA/LEVODOPA [Concomitant]
     Active Substance: CARBIDOPA\LEVODOPA
     Indication: PRODUCT USED FOR UNKNOWN INDICATION
     Dosage: 100/25

REACTIONS (24)
  - Sepsis [Fatal]
  - Renal injury [Fatal]
  - Gastric perforation [Fatal]
  - Pneumoperitoneum [Fatal]
  - Upper gastrointestinal haemorrhage [Fatal]
  - Melaena [Not Recovered/Not Resolved]
  - Hypotension [Not Recovered/Not Resolved]
  - Tremor [Unknown]
  - Parkinson^s disease [Fatal]
  - Faeces discoloured [Not Recovered/Not Resolved]
  - Oedema mucosal [Not Recovered/Not Resolved]
  - Renal vein thrombosis [Not Recovered/Not Resolved]
  - Hypovolaemic shock [Fatal]
  - Medical device site erosion [Fatal]
  - Depressed level of consciousness [Not Recovered/Not Resolved]
  - Intestinal ischaemia [Unknown]
  - Contusion [Unknown]
  - Peritonitis [Not Recovered/Not Resolved]
  - Blood creatinine increased [Unknown]
  - Intra-abdominal fluid collection [Unknown]
  - Drug ineffective [Unknown]
  - Body temperature abnormal [Not Recovered/Not Resolved]
  - Intestinal sepsis [Not Recovered/Not Resolved]
  - Malaise [Unknown]

NARRATIVE: CASE EVENT DATE: 201801
